FAERS Safety Report 15545572 (Version 1)
Quarter: 2018Q4

REPORT INFORMATION
  Report Type: Spontaneous
  Country: US (occurrence: US)
  Receive Date: 20181024
  Receipt Date: 20181024
  Transmission Date: 20190205
  Serious: No
  Sender: FDA-Public Use
  Company Number: US-IPSEN BIOPHARMACEUTICALS, INC.-2018-15156

PATIENT
  Age: 46 Year
  Sex: Female
  Weight: 74.91 kg

DRUGS (3)
  1. SUPREP BOWEL PREP [Suspect]
     Active Substance: MAGNESIUM SULFATE\POTASSIUM SULFATE\SODIUM SULFATE
     Indication: COLONOSCOPY
     Dosage: 2 X 6 OZ. BOTTLE.
     Dates: start: 20180919, end: 20180920
  2. SINGULAIR [Concomitant]
     Active Substance: MONTELUKAST SODIUM
  3. ESTROGEN [Concomitant]
     Active Substance: ESTROGENS

REACTIONS (1)
  - Vomiting [Unknown]

NARRATIVE: CASE EVENT DATE: 20180920
